FAERS Safety Report 12202377 (Version 1)
Quarter: 2016Q1

REPORT INFORMATION
  Report Type: Spontaneous
  Country: US (occurrence: US)
  Receive Date: 20160322
  Receipt Date: 20160322
  Transmission Date: 20160526
  Serious: No
  Sender: FDA-Public Use
  Company Number: US-BAYER-2016-054098

PATIENT
  Sex: Male

DRUGS (1)
  1. CLIMARA [Suspect]
     Active Substance: ESTRADIOL
     Dosage: UNK MG, UNK
     Route: 062
     Dates: start: 201404, end: 201602

REACTIONS (4)
  - Product use issue [None]
  - Application site inflammation [None]
  - Skin irritation [None]
  - Erythema [None]

NARRATIVE: CASE EVENT DATE: 20160211
